FAERS Safety Report 9298236 (Version 3)
Quarter: 2013Q3

REPORT INFORMATION
  Report Type: Report from Study
  Country: CA (occurrence: CA)
  Receive Date: 20130520
  Receipt Date: 20130703
  Transmission Date: 20140515
  Serious: Yes (Hospitalization, Other)
  Sender: FDA-Public Use
  Company Number: CA-JNJFOC-20130510410

PATIENT
  Age: 47 Year
  Sex: Female
  Weight: 72 kg

DRUGS (7)
  1. REMICADE [Suspect]
     Indication: CROHN^S DISEASE
     Dosage: 700 MG
     Route: 042
  2. REMICADE [Suspect]
     Indication: CROHN^S DISEASE
     Route: 042
     Dates: start: 201008
  3. REMICADE [Suspect]
     Indication: CROHN^S DISEASE
     Route: 042
     Dates: start: 2011
  4. METHOTREXATE [Concomitant]
     Route: 065
  5. CODEINE [Concomitant]
     Route: 065
  6. NEXIUM [Concomitant]
     Route: 065
  7. IMODIUM [Concomitant]
     Route: 065

REACTIONS (3)
  - Cholelithiasis [Recovering/Resolving]
  - Gallbladder perforation [Recovering/Resolving]
  - Post procedural infection [Recovering/Resolving]
